FAERS Safety Report 4381701-0 (Version None)
Quarter: 2004Q2

REPORT INFORMATION
  Report Type: 
  Country: None (occurrence: None)
  Receive Date: 20040615
  Receipt Date: 20040528
  Transmission Date: 20050107
  Serious: Yes (Hospitalization)
  Sender: FDA-Public Use
  Company Number: 2004212920JP

PATIENT
  Age: 83 Year
  Sex: Female

DRUGS (8)
  1. HALCION [Suspect]
     Dosage: 0.125 MG/DAY, ORAL
     Route: 048
  2. RISPERDAL [Suspect]
     Dosage: 1 MG/DAY, ORAL
     Route: 048
     Dates: end: 20040427
  3. DEPAS (ETIZOLAM) [Concomitant]
  4. SIGMART (NICORANDIL) [Concomitant]
  5. CARDENALIN [Concomitant]
  6. PLETAL [Concomitant]
  7. JUVELA NICOTINATE (TOCOPHERYL NICOTINATE) [Concomitant]
  8. METHYCOBAL (MECOBALAMIN) [Concomitant]

REACTIONS (1)
  - BLOOD CREATINE PHOSPHOKINASE INCREASED [None]
